FAERS Safety Report 7741173-2 (Version None)
Quarter: 2011Q3

REPORT INFORMATION
  Report Type: 
  Country: None (occurrence: None)
  Receive Date: 20110909
  Receipt Date: 20110830
  Transmission Date: 20111222
  Serious: Yes (Other)
  Sender: FDA-Public Use
  Company Number: US-ELI_LILLY_AND_COMPANY-US201108009397

PATIENT
  Sex: Male

DRUGS (3)
  1. CYMBALTA [Suspect]
     Dosage: 60 MG, QD
  2. CYMBALTA [Suspect]
     Indication: POST-TRAUMATIC STRESS DISORDER
     Dosage: 30 MG, QD
  3. LEXAPRO [Concomitant]
     Dosage: 10 MG, QD

REACTIONS (15)
  - THROMBOSIS [None]
  - ABNORMAL DREAMS [None]
  - MAJOR DEPRESSION [None]
  - OFF LABEL USE [None]
  - RESTLESS LEGS SYNDROME [None]
  - MUSCLE TWITCHING [None]
  - IRRITABILITY [None]
  - ANXIETY DISORDER [None]
  - COLD SWEAT [None]
  - SLEEP DISORDER [None]
  - VISUAL ACUITY REDUCED [None]
  - MEMORY IMPAIRMENT [None]
  - MUSCLE SPASMS [None]
  - SENSORY DISTURBANCE [None]
  - DEPRESSED MOOD [None]
